FAERS Safety Report 17794679 (Version 6)
Quarter: 2020Q3

REPORT INFORMATION
  Report Type: Spontaneous
  Country: US (occurrence: US)
  Receive Date: 20200515
  Receipt Date: 20200814
  Transmission Date: 20201102
  Serious: Yes (Hospitalization)
  Sender: FDA-Public Use
  Company Number: US-ACTELION-A-NJ2020-205183

PATIENT
  Age: 1 Year
  Sex: Male
  Weight: 8.16 kg

DRUGS (5)
  1. REMODULIN [Suspect]
     Active Substance: TREPROSTINIL
     Indication: PRODUCT USED FOR UNKNOWN INDICATION
     Dosage: 42 NG/KG, PER MIN
     Route: 058
     Dates: start: 20200328, end: 20200413
  2. SILDENAFIL CITRATE. [Concomitant]
     Active Substance: SILDENAFIL CITRATE
  3. TRACLEER [Suspect]
     Active Substance: BOSENTAN
     Indication: PULMONARY HYPERTENSION
     Dosage: 16 MG, BID
     Route: 048
  4. SILDENAFIL. [Concomitant]
     Active Substance: SILDENAFIL
     Dosage: 16 MG, TID
     Dates: start: 202003
  5. ASA [Concomitant]
     Active Substance: ASPIRIN
     Dosage: 40.5 MG, QD
     Dates: start: 20200326

REACTIONS (14)
  - Infusion site reaction [Unknown]
  - Infusion site laceration [Unknown]
  - Catheter management [Recovered/Resolved]
  - Pain [Unknown]
  - Infusion site rash [Unknown]
  - Therapy change [Recovered/Resolved]
  - Infusion site discomfort [Unknown]
  - Infusion site cellulitis [Recovering/Resolving]
  - Device dislocation [Recovered/Resolved]
  - Infusion site erythema [Unknown]
  - Swelling [Unknown]
  - Deep vein thrombosis [Recovered/Resolved]
  - Infusion site pain [Unknown]
  - Infusion site discharge [Unknown]

NARRATIVE: CASE EVENT DATE: 20200326
